FAERS Safety Report 15726554 (Version 1)
Quarter: 2018Q4

REPORT INFORMATION
  Report Type: Spontaneous
  Country: US (occurrence: US)
  Receive Date: 20181217
  Receipt Date: 20181217
  Transmission Date: 20190205
  Serious: No
  Sender: FDA-Public Use
  Company Number: US-NOVOPROD-575842

PATIENT
  Age: 66 Year
  Sex: Female

DRUGS (3)
  1. LEVEMIR [Suspect]
     Active Substance: INSULIN DETEMIR
     Indication: TYPE 2 DIABETES MELLITUS
     Dosage: 24-28 UNITS AT NIGHT
     Route: 058
     Dates: start: 201610
  2. LOSARTAN. [Suspect]
     Active Substance: LOSARTAN
     Indication: BLOOD PRESSURE INCREASED
     Dosage: 25 MG, QD - IN THE MORNING
     Route: 048
     Dates: end: 2017
  3. LOSARTAN. [Suspect]
     Active Substance: LOSARTAN
     Dosage: 25 MG, BID - MORNING AND EVENING
     Route: 048
     Dates: start: 2017

REACTIONS (1)
  - Hypertension [Not Recovered/Not Resolved]

NARRATIVE: CASE EVENT DATE: 201709
